FAERS Safety Report 5315506-0 (Version None)
Quarter: 2007Q2

REPORT INFORMATION
  Report Type: 
  Country: None (occurrence: None)
  Receive Date: 20070503
  Receipt Date: 20070424
  Transmission Date: 20071010
  Serious: Yes (Life-Threatening)
  Sender: FDA-Public Use
  Company Number: FR-BRISTOL-MYERS SQUIBB COMPANY-13767249

PATIENT
  Age: 42 Year
  Sex: Male

DRUGS (13)
  1. ENDOXAN [Suspect]
     Indication: B-CELL LYMPHOMA
     Route: 042
     Dates: start: 20070312
  2. METHOTREXATE [Suspect]
     Indication: B-CELL LYMPHOMA
     Dates: start: 20070313, end: 20070313
  3. CORTANCYL [Suspect]
     Indication: B-CELL LYMPHOMA
     Route: 048
     Dates: start: 20070312, end: 20070316
  4. ELDISINE [Suspect]
     Indication: B-CELL LYMPHOMA
     Route: 042
     Dates: start: 20070312
  5. FARMORUBICINE [Suspect]
     Indication: B-CELL LYMPHOMA
     Route: 042
     Dates: start: 20070312
  6. MABTHERA [Suspect]
     Indication: B-CELL LYMPHOMA
     Route: 042
  7. RIMIFON [Concomitant]
  8. PIRILENE [Concomitant]
  9. DEXAMBUTOL [Concomitant]
  10. ANSATIPINE [Concomitant]
  11. BACTRIM [Concomitant]
  12. SPECIAFOLDINE [Concomitant]
  13. METHYLPREDNISOLONE 16MG TAB [Concomitant]

REACTIONS (3)
  - CEREBRAL HAEMATOMA [None]
  - DELUSION [None]
  - STATUS EPILEPTICUS [None]
